FAERS Safety Report 13097612 (Version 1)
Quarter: 2017Q1

REPORT INFORMATION
  Report Type: Spontaneous
  Country: FR (occurrence: FR)
  Receive Date: 20170109
  Receipt Date: 20170109
  Transmission Date: 20170428
  Serious: Yes (Hospitalization)
  Sender: FDA-Public Use
  Company Number: FR-SA-2017SA002961

PATIENT
  Age: 33 Year
  Sex: Female

DRUGS (3)
  1. LAROXYL [Suspect]
     Active Substance: AMITRIPTYLINE
     Dosage: 25 DROPS
     Route: 065
     Dates: start: 201410
  2. COUMADINE [Suspect]
     Active Substance: WARFARIN SODIUM
     Route: 048
     Dates: start: 201410
  3. LOVENOX [Suspect]
     Active Substance: ENOXAPARIN SODIUM
     Route: 058
     Dates: start: 201410

REACTIONS (2)
  - Asthenia [Recovered/Resolved]
  - Hyperhidrosis [Recovered/Resolved]

NARRATIVE: CASE EVENT DATE: 20141031
